FAERS Safety Report 8579533-2 (Version None)
Quarter: 2012Q3

REPORT INFORMATION
  Report Type: 
  Country: None (occurrence: None)
  Receive Date: 20120726
  Receipt Date: 20120716
  Transmission Date: 20120928
  Serious: Yes (Other)
  Sender: FDA-Public Use
  Company Number: 2012MA008984

PATIENT
  Sex: Female

DRUGS (2)
  1. TAPENTADOL (NO PREF. NAME) [Suspect]
     Indication: PAIN
     Dosage: 250 MG;QD;PO
     Route: 048
     Dates: start: 20110801
  2. TRAMADOL HYDROCHLORIDE [Suspect]
     Indication: PAIN
     Dosage: 400 MG;PO
     Route: 048
     Dates: end: 20111101

REACTIONS (9)
  - DRUG INEFFECTIVE [None]
  - INAPPROPRIATE SCHEDULE OF DRUG ADMINISTRATION [None]
  - TREMOR [None]
  - RESTLESSNESS [None]
  - FEELING ABNORMAL [None]
  - WITHDRAWAL SYNDROME [None]
  - AGITATION [None]
  - INSOMNIA [None]
  - PAIN IN EXTREMITY [None]
